FAERS Safety Report 5456105-X (Version None)
Quarter: 2007Q3

REPORT INFORMATION
  Report Type: 
  Country: None (occurrence: None)
  Receive Date: 20070918
  Receipt Date: 20070914
  Transmission Date: 20080115
  Serious: Yes (Other)
  Sender: FDA-Public Use
  Company Number: PHEH2007US09403

PATIENT
  Age: 76 Year
  Sex: Female

DRUGS (1)
  1. LAMISIL [Suspect]
     Indication: FUNGAL INFECTION
     Dosage: 250 MG, UNK
     Route: 048
     Dates: start: 20070521, end: 20070606

REACTIONS (3)
  - BALANCE DISORDER [None]
  - DISORIENTATION [None]
  - READING DISORDER [None]
